FAERS Safety Report 6210879-9 (Version None)
Quarter: 2009Q2

REPORT INFORMATION
  Report Type: 
  Country: None (occurrence: None)
  Receive Date: 20090527
  Receipt Date: 20090514
  Transmission Date: 20091009
  Serious: Yes (Other)
  Sender: FDA-Public Use
  Company Number: 233319K09USA

PATIENT
  Age: 48 Year
  Sex: Female
  Weight: 67 kg

DRUGS (9)
  1. REBIF [Suspect]
     Indication: MULTIPLE SCLEROSIS
     Dosage: 8.8 MCG, 3 IN 1 WEEKS, SUBCUTANEOUS; 22 MCG, , SUBCUTANEOUS; 44 MCG, 3 IN 1 WEEKS, SUBCUTANEOUS
     Route: 058
     Dates: start: 20090101, end: 20090101
  2. REBIF [Suspect]
     Indication: MULTIPLE SCLEROSIS
     Dosage: 8.8 MCG, 3 IN 1 WEEKS, SUBCUTANEOUS; 22 MCG, , SUBCUTANEOUS; 44 MCG, 3 IN 1 WEEKS, SUBCUTANEOUS
     Route: 058
     Dates: start: 20090218, end: 20090101
  3. REBIF [Suspect]
     Indication: MULTIPLE SCLEROSIS
     Dosage: 8.8 MCG, 3 IN 1 WEEKS, SUBCUTANEOUS; 22 MCG, , SUBCUTANEOUS; 44 MCG, 3 IN 1 WEEKS, SUBCUTANEOUS
     Route: 058
     Dates: start: 20090101
  4. IBUPROFEN [Concomitant]
  5. B-12 INJECTION (CYANOCOBALAMIN) [Concomitant]
  6. EXCEDRIN MIGRAINE (THOMAPYRIN N) [Concomitant]
  7. LEVOTHYROXINE (LEVOTHYROXINE /00068001/) [Concomitant]
  8. VALTREX [Concomitant]
  9. LOESTRIN (ANOVLAR) [Concomitant]

REACTIONS (1)
  - MENORRHAGIA [None]
